FAERS Safety Report 5339475-2 (Version None)
Quarter: 2007Q2

REPORT INFORMATION
  Report Type: 
  Country: None (occurrence: None)
  Receive Date: 20070404
  Receipt Date: 20060505
  Transmission Date: 20071010
  Serious: Yes (Hospitalization, Other)
  Sender: FDA-Public Use
  Company Number: 2006033394

PATIENT
  Age: 34 Year
  Sex: Male
  Weight: 49.4421 kg

DRUGS (3)
  1. GEODON [Suspect]
     Indication: SCHIZOAFFECTIVE DISORDER
     Dosage: 160 MG (160 MG, 1 IN 1 D) ORAL
     Route: 048
     Dates: start: 20051024, end: 20060209
  2. CELEXA [Concomitant]
  3. CYANOCOBALAMIN [Concomitant]

REACTIONS (6)
  - DECREASED APPETITE [None]
  - DEHYDRATION [None]
  - DRUG INEFFECTIVE [None]
  - NEUROLEPTIC MALIGNANT SYNDROME [None]
  - PLATELET COUNT INCREASED [None]
  - SCHIZOAFFECTIVE DISORDER [None]
